FAERS Safety Report 16882973 (Version 1)
Quarter: 2019Q4

REPORT INFORMATION
  Report Type: Spontaneous
  Country: US (occurrence: US)
  Receive Date: 20191004
  Receipt Date: 20191004
  Transmission Date: 20200122
  Serious: No
  Sender: FDA-Public Use
  Company Number: US-ASTRAZENECA-2019SF27151

PATIENT
  Sex: Female

DRUGS (1)
  1. FASENRA [Suspect]
     Active Substance: BENRALIZUMAB
     Indication: ASTHMA
     Dosage: 2 DOSE (MONTHLY)
     Route: 058

REACTIONS (3)
  - Loss of personal independence in daily activities [Unknown]
  - Mycobacterial infection [Unknown]
  - Pulmonary mass [Unknown]
